FAERS Safety Report 6833310-9 (Version None)
Quarter: 2010Q3

REPORT INFORMATION
  Report Type: 
  Country: None (occurrence: None)
  Receive Date: 20100712
  Receipt Date: 20100628
  Transmission Date: 20110219
  Serious: Yes (Life-Threatening, Hospitalization)
  Sender: FDA-Public Use
  Company Number: JP-AMGEN-US407938

PATIENT
  Sex: Female
  Weight: 41 kg

DRUGS (8)
  1. ENBREL [Suspect]
     Indication: RHEUMATOID ARTHRITIS
     Route: 058
     Dates: start: 20081017, end: 20090526
  2. RHEUMATREX [Suspect]
     Indication: RHEUMATOID ARTHRITIS
     Route: 048
     Dates: start: 20070911, end: 20071001
  3. RHEUMATREX [Suspect]
     Route: 048
     Dates: start: 20071001, end: 20071101
  4. RHEUMATREX [Suspect]
     Route: 048
     Dates: start: 20071101, end: 20090528
  5. FOLIAMIN [Concomitant]
     Indication: PROPHYLAXIS
     Route: 048
     Dates: start: 20071127, end: 20090522
  6. PREDNISOLONE [Concomitant]
     Indication: RHEUMATOID ARTHRITIS
     Route: 048
     Dates: start: 20061018
  7. ALFAROL [Concomitant]
     Indication: OSTEOPOROSIS
     Route: 048
     Dates: start: 20081020, end: 20090528
  8. SALAZOSULFAPYRIDINE [Concomitant]
     Indication: RHEUMATOID ARTHRITIS
     Route: 048
     Dates: start: 20070117, end: 20090528

REACTIONS (3)
  - DIFFUSE LARGE B-CELL LYMPHOMA STAGE IV [None]
  - DISSEMINATED INTRAVASCULAR COAGULATION [None]
  - METASTASIS [None]
